FAERS Safety Report 4305832-6 (Version None)
Quarter: 2004Q1

REPORT INFORMATION
  Report Type: 
  Country: None (occurrence: None)
  Receive Date: 20040225
  Receipt Date: 20040210
  Transmission Date: 20041129
  Serious: Yes (Disabling)
  Sender: FDA-Public Use
  Company Number: A01200400620

PATIENT
  Age: 69 Year
  Sex: Male

DRUGS (9)
  1. ELOXATIN (OXALIPLATIN) UNKNOWN [Suspect]
     Indication: GASTROINTESTINAL CARCINOMA
     Dosage: INTRAVENOUS NOS
     Route: 042
  2. ELOXATIN (OXALIPLATIN) UNKNOWN [Suspect]
     Indication: METASTASES TO BONE
     Dosage: INTRAVENOUS NOS
     Route: 042
  3. ELOXATIN (OXALIPLATIN) UNKNOWN [Suspect]
     Indication: METASTASES TO LIVER
     Dosage: INTRAVENOUS NOS
     Route: 042
  4. XELODA [Concomitant]
  5. MAXALON (METOCLOPRAMIDE HYDROCHLORIDE) [Concomitant]
  6. BACLOFEN [Concomitant]
  7. ACIMAX (OMEPRAZOLE) [Concomitant]
  8. ASPIRIN [Concomitant]
  9. COLOXYL (DOCUSATE SODIUM) [Concomitant]

REACTIONS (4)
  - HEMIANOPIA [None]
  - OPTIC ISCHAEMIC NEUROPATHY [None]
  - VISION BLURRED [None]
  - VISUAL FIELD DEFECT [None]
